FAERS Safety Report 4350724-X (Version None)
Quarter: 2004Q2

REPORT INFORMATION
  Report Type: 
  Country: None (occurrence: None)
  Receive Date: 20040428
  Receipt Date: 20040304
  Transmission Date: 20050107
  Serious: Yes (Death)
  Sender: FDA-Public Use
  Company Number: 6007767

PATIENT
  Age: 73 Year
  Sex: Male

DRUGS (6)
  1. BISOPROLOL(TABLETS) (BISOPROLOL) [Suspect]
     Indication: CARDIAC FAILURE
     Dosage: 1,25   ORAL    ; 2,5 ORAL
     Route: 048
     Dates: start: 20040628, end: 20040204
  2. BISOPROLOL(TABLETS) (BISOPROLOL) [Suspect]
     Indication: CARDIAC FAILURE
     Dosage: 1,25   ORAL    ; 2,5 ORAL
     Route: 048
     Dates: start: 20040205, end: 20040211
  3. FUROSEMIDE [Concomitant]
  4. PRAVASTATIN [Concomitant]
  5. ASPIRIN [Concomitant]
  6. SANDOGLOBULIN [Concomitant]

REACTIONS (6)
  - CARDIAC OUTPUT DECREASED [None]
  - HYPOTENSION [None]
  - IDIOPATHIC THROMBOCYTOPENIC PURPURA [None]
  - OFF LABEL USE [None]
  - PULMONARY OEDEMA [None]
  - RENAL FAILURE ACUTE [None]
